FAERS Safety Report 10997153 (Version 2)
Quarter: 2015Q2

REPORT INFORMATION
  Report Type: Spontaneous
  Country: IT (occurrence: IT)
  Receive Date: 20150408
  Receipt Date: 20150415
  Transmission Date: 20150821
  Serious: Yes (Hospitalization)
  Sender: FDA-Public Use
  Company Number: IT-ROCHE-1561655

PATIENT
  Age: 27 Year
  Sex: Male
  Weight: 90 kg

DRUGS (2)
  1. MABTHERA [Suspect]
     Active Substance: RITUXIMAB
     Indication: NEPHROTIC SYNDROME
     Dosage: 1 X 500 MG 50 ML VIAL
     Route: 042
     Dates: start: 20150331, end: 20150331
  2. MABTHERA [Suspect]
     Active Substance: RITUXIMAB
     Indication: GLOMERULONEPHRITIS MEMBRANOUS
     Dosage: 2 X 10 ML VIALS OF 100 MG
     Route: 042
     Dates: start: 20150331, end: 20150331

REACTIONS (4)
  - Rhinorrhoea [Recovered/Resolved]
  - Oropharyngeal discomfort [Recovered/Resolved]
  - Nasal congestion [Recovered/Resolved]
  - Conjunctival hyperaemia [Recovered/Resolved]

NARRATIVE: CASE EVENT DATE: 20150331
